FAERS Safety Report 24186488 (Version 1)
Quarter: 2024Q3

REPORT INFORMATION
  Report Type: Spontaneous
  Country: FR (occurrence: FR)
  Receive Date: 20240808
  Receipt Date: 20240808
  Transmission Date: 20241017
  Serious: Yes (Other)
  Sender: NOVITIUM PHARMA
  Company Number: FR-NOVITIUMPHARMA-2024FRNVP01492

PATIENT
  Age: 49 Year
  Sex: Male

DRUGS (2)
  1. SILDENAFIL CITRATE [Suspect]
     Active Substance: SILDENAFIL CITRATE
     Indication: Product used for unknown indication
  2. MORPHINE [Concomitant]
     Active Substance: MORPHINE
     Indication: Product used for unknown indication

REACTIONS (1)
  - Drug abuse [Unknown]
